FAERS Safety Report 24553805 (Version 1)
Quarter: 2024Q4

REPORT INFORMATION
  Report Type: Report from Study
  Country: US (occurrence: US)
  Receive Date: 20241028
  Receipt Date: 20241028
  Transmission Date: 20250114
  Serious: No
  Sender: ROCHE
  Company Number: US-ROCHE-10000055469

PATIENT
  Age: 82 Year
  Sex: Female

DRUGS (1)
  1. NUTROPIN [Suspect]
     Active Substance: SOMATROPIN
     Indication: Product used for unknown indication
     Route: 065

REACTIONS (9)
  - Malaise [Not Recovered/Not Resolved]
  - Therapy change [Not Recovered/Not Resolved]
  - Wrong dose [Unknown]
  - Tremor [Unknown]
  - Feeling abnormal [Unknown]
  - Feeling abnormal [Unknown]
  - Feeling of despair [Unknown]
  - Product dose omission issue [Unknown]
  - Lethargy [Unknown]

NARRATIVE: CASE EVENT DATE: 20240801
